FAERS Safety Report 7568738-5 (Version None)
Quarter: 2011Q2

REPORT INFORMATION
  Report Type: 
  Country: None (occurrence: None)
  Receive Date: 20110623
  Receipt Date: 20110613
  Transmission Date: 20111010
  Serious: Yes (Hospitalization)
  Sender: FDA-Public Use
  Company Number: DE-BRISTOL-MYERS SQUIBB COMPANY-14366199

PATIENT
  Age: 69 Year
  Sex: Male

DRUGS (2)
  1. PLACEBO [Suspect]
     Indication: THROMBOSIS PROPHYLAXIS
     Dosage: DISCONTINUED ON 05OCT08
     Route: 048
     Dates: start: 20071114, end: 20081004
  2. WARFARIN SODIUM [Suspect]
     Indication: THROMBOSIS PROPHYLAXIS
     Dosage: DISCONTINUED ON 05OCT08
     Route: 048
     Dates: start: 20071114, end: 20081004

REACTIONS (2)
  - BRONCHITIS [None]
  - HAEMOPTYSIS [None]
